FAERS Safety Report 10096093 (Version 6)
Quarter: 2014Q2

REPORT INFORMATION
  Report Type: Report from Study
  Country: BR (occurrence: BR)
  Receive Date: 20140422
  Receipt Date: 20140619
  Transmission Date: 20141212
  Serious: Yes (Other)
  Sender: FDA-Public Use
  Company Number: PHHY2014BR047552

PATIENT
  Age: 68 Year
  Sex: Female
  Weight: 78 kg

DRUGS (5)
  1. ACLASTA [Suspect]
     Indication: OSTEOPOROSIS
     Dosage: 5 MG/100ML ANNUALLY 1 APPLICATION
     Route: 042
     Dates: start: 20130619
  2. LOSARTAN [Concomitant]
     Indication: HYPERTENSION
     Dosage: 100 ML, QD
     Dates: start: 2011
  3. ALENDRONATE [Concomitant]
     Indication: OSTEOPOROSIS
     Dosage: 70 ML, WEEKLY
     Dates: start: 2013
  4. CALCIUM D3 [Concomitant]
     Indication: OSTEOPOROSIS
     Dosage: 1 DF, QD
     Route: 048
     Dates: start: 2010
  5. POLTAX [Concomitant]
     Indication: OSTEOPOROSIS
     Dosage: 1 DF, QD
     Route: 048

REACTIONS (5)
  - Femur fracture [Recovered/Resolved]
  - Pathological fracture [Recovered/Resolved]
  - Foot fracture [Recovering/Resolving]
  - Blood pressure fluctuation [Not Recovered/Not Resolved]
  - Pain [Unknown]
